FAERS Safety Report 5233823-X (Version None)
Quarter: 2007Q1

REPORT INFORMATION
  Report Type: 
  Country: None (occurrence: None)
  Receive Date: 20070208
  Receipt Date: 20070108
  Transmission Date: 20070707
  Serious: Yes (Hospitalization)
  Sender: FDA-Public Use
  Company Number: DE-ELI_LILLY_AND_COMPANY-DE200701002304

PATIENT
  Age: 11 Year
  Sex: Male

DRUGS (2)
  1. ATOMOXETINE HYDROCHLORIDE [Suspect]
     Dosage: 0.5 MG/KG, DAILY (1/D)
     Route: 048
     Dates: start: 20061216
  2. ATOMOXETINE HYDROCHLORIDE [Suspect]
     Dosage: 1.2 MG/KG, DAILY (1/D)
     Route: 048

REACTIONS (2)
  - ABDOMINAL PAIN [None]
  - ABDOMINAL PAIN UPPER [None]
